FAERS Safety Report 7280258-4 (Version None)
Quarter: 2011Q1

REPORT INFORMATION
  Report Type: 
  Country: None (occurrence: None)
  Receive Date: 20110208
  Receipt Date: 20100618
  Transmission Date: 20110831
  Serious: Yes (Hospitalization, Other)
  Sender: FDA-Public Use
  Company Number: US-BAYER-201021375NA

PATIENT

DRUGS (8)
  1. NAPROSYN [Concomitant]
     Route: 065
     Dates: start: 20071001, end: 20080401
  2. MOTRIN [Concomitant]
     Route: 065
     Dates: start: 20071001, end: 20080401
  3. NSAID'S [Concomitant]
     Route: 065
     Dates: start: 20071001, end: 20080401
  4. INDOMETHACIN [Concomitant]
     Indication: BRONCHITIS
     Route: 065
     Dates: start: 20080408, end: 20080410
  5. AZITHROMYCIN [Concomitant]
     Indication: BRONCHITIS
     Route: 065
     Dates: start: 20080408, end: 20080410
  6. YAZ [Suspect]
     Indication: CONTRACEPTION
     Route: 048
     Dates: start: 20071101, end: 20080401
  7. ORTHO TRI-CYCLEN [Concomitant]
     Route: 048
     Dates: start: 19960601, end: 20070501
  8. IRON [Concomitant]
     Route: 048
     Dates: start: 20071001

REACTIONS (3)
  - PULMONARY EMBOLISM [None]
  - PULMONARY INFARCTION [None]
  - ATELECTASIS [None]
